FAERS Safety Report 6754942-2 (Version None)
Quarter: 2010Q2

REPORT INFORMATION
  Report Type: 
  Country: None (occurrence: None)
  Receive Date: 20100602
  Receipt Date: 20100510
  Transmission Date: 20101027
  Serious: Yes (Hospitalization, Other)
  Sender: FDA-Public Use
  Company Number: JPI-P-010696

PATIENT
  Age: 64 Year
  Sex: Female

DRUGS (3)
  1. XYREM [Suspect]
     Indication: DRUG USE FOR UNKNOWN INDICATION
     Dosage: 5 GM, ORAL
     Route: 048
     Dates: start: 20080414, end: 20100506
  2. MODAFINIL [Concomitant]
  3. METHYLPHENIDATE [Concomitant]

REACTIONS (1)
  - CEREBRAL INFARCTION [None]
